FAERS Safety Report 24389946 (Version 2)
Quarter: 2024Q4

REPORT INFORMATION
  Report Type: Report from Study
  Country: JP (occurrence: JP)
  Receive Date: 20241003
  Receipt Date: 20241126
  Transmission Date: 20250114
  Serious: Yes (Hospitalization, Other)
  Sender: GLAXOSMITHKLINE
  Company Number: JP-GSK-JP2020JPN098449

PATIENT

DRUGS (56)
  1. MEPOLIZUMAB [Suspect]
     Active Substance: MEPOLIZUMAB
     Indication: Eosinophilic granulomatosis with polyangiitis
     Dosage: 300 MG
     Dates: start: 20190225, end: 20190225
  2. MEPOLIZUMAB [Suspect]
     Active Substance: MEPOLIZUMAB
     Dosage: 300 MG, Q5W
     Dates: start: 20190404, end: 20190404
  3. MEPOLIZUMAB [Suspect]
     Active Substance: MEPOLIZUMAB
     Dosage: 300 MG, Q4W
     Dates: start: 20190509, end: 20200107
  4. MEPOLIZUMAB [Suspect]
     Active Substance: MEPOLIZUMAB
     Dosage: 300 MG, Q6W
     Dates: start: 20200219, end: 20200219
  5. MEPOLIZUMAB [Suspect]
     Active Substance: MEPOLIZUMAB
     Dosage: 300 MG, Q4W
     Dates: start: 20200325, end: 20200325
  6. FLUTICASONE FUROATE\VILANTEROL TRIFENATATE [Concomitant]
     Active Substance: FLUTICASONE FUROATE\VILANTEROL TRIFENATATE
     Dosage: 100 ?G, 1D
     Route: 055
     Dates: end: 20190227
  7. PREDNISOLONE [Concomitant]
     Active Substance: PREDNISOLONE
     Indication: Eosinophilic granulomatosis with polyangiitis
     Dosage: 40 MG, 1D
     Route: 048
     Dates: start: 20190220, end: 20190225
  8. PREDNISOLONE [Concomitant]
     Active Substance: PREDNISOLONE
     Indication: Cranial nerve disorder
     Dosage: 30 MG, 1D
     Route: 048
     Dates: start: 20190305, end: 20190323
  9. PREDNISOLONE [Concomitant]
     Active Substance: PREDNISOLONE
     Dosage: 25 MG, 1D
     Route: 048
     Dates: start: 20190324, end: 20190406
  10. PREDNISOLONE [Concomitant]
     Active Substance: PREDNISOLONE
     Dosage: 20 MG, 1D
     Route: 048
     Dates: start: 20190407, end: 20190511
  11. PREDNISOLONE [Concomitant]
     Active Substance: PREDNISOLONE
     Dosage: 15 MG, 1D
     Route: 048
     Dates: start: 20190512, end: 20190623
  12. PREDNISOLONE [Concomitant]
     Active Substance: PREDNISOLONE
     Dosage: 30 MG, 1D
     Route: 048
     Dates: start: 20190904, end: 20190912
  13. PREDNISOLONE [Concomitant]
     Active Substance: PREDNISOLONE
     Dosage: 25 MG, 1D
     Route: 048
     Dates: start: 20190913, end: 20191010
  14. PREDONINE [Concomitant]
     Active Substance: PREDNISOLONE
     Indication: Eosinophilic granulomatosis with polyangiitis
     Dosage: 40 MG, 1D
     Route: 042
     Dates: start: 20190224, end: 20190224
  15. PREDONINE [Concomitant]
     Active Substance: PREDNISOLONE
     Indication: Cranial nerve disorder
     Dosage: 40 MG, 1D
     Route: 042
     Dates: start: 20190226, end: 20190304
  16. PREDONINE [Concomitant]
     Active Substance: PREDNISOLONE
     Dosage: 30 MG, 1D
     Route: 042
     Dates: start: 20190830, end: 20190903
  17. IMURAN [Concomitant]
     Active Substance: AZATHIOPRINE
     Indication: Eosinophilic granulomatosis with polyangiitis
     Dosage: 50 MG, 1D
     Dates: start: 20190131, end: 20190227
  18. MONTELUKAST [Concomitant]
     Active Substance: MONTELUKAST
     Dosage: UNK
  19. THEOPHYLLINE [Concomitant]
     Active Substance: THEOPHYLLINE
     Dosage: UNK
  20. LYRICA [Concomitant]
     Active Substance: PREGABALIN
     Indication: Eosinophilic granulomatosis with polyangiitis
     Dosage: UNK
  21. CALONAL [Concomitant]
     Active Substance: ACETAMINOPHEN
     Indication: Eosinophilic granulomatosis with polyangiitis
     Dosage: UNK
  22. SULFAMETHOXAZOLE\TRIMETHOPRIM [Concomitant]
     Active Substance: SULFAMETHOXAZOLE\TRIMETHOPRIM
     Indication: Antifungal prophylaxis
     Dosage: UNK
  23. BONALON [Concomitant]
     Active Substance: ALENDRONATE SODIUM
     Indication: Osteoporosis prophylaxis
     Dosage: UNK
  24. MAGNESIUM OXIDE [Concomitant]
     Active Substance: MAGNESIUM OXIDE
     Indication: Constipation prophylaxis
     Dosage: UNK
  25. METOCLOPRAMIDE HYDROCHLORIDE [Concomitant]
     Active Substance: METOCLOPRAMIDE HYDROCHLORIDE
     Indication: Eosinophilic granulomatosis with polyangiitis
     Dosage: UNK
  26. LANSOPRAZOLE [Concomitant]
     Active Substance: LANSOPRAZOLE
     Indication: Gastritis prophylaxis
     Dosage: UNK
  27. DECADRON [Concomitant]
     Active Substance: DEXAMETHASONE
     Indication: Eosinophilic granulomatosis with polyangiitis
     Dosage: 2.25 MG, 1D
     Route: 048
     Dates: start: 20190624, end: 20190814
  28. DECADRON [Concomitant]
     Active Substance: DEXAMETHASONE
     Dosage: 2 MG, 1D
     Route: 048
     Dates: start: 20190815, end: 20190824
  29. DECADRON [Concomitant]
     Active Substance: DEXAMETHASONE
     Dosage: 3.25 MG, 1D
     Route: 048
     Dates: start: 20191011, end: 20191019
  30. DECADRON [Concomitant]
     Active Substance: DEXAMETHASONE
     Dosage: 3.75 MG, 1D
     Route: 048
     Dates: start: 20191020, end: 20191107
  31. DECADRON [Concomitant]
     Active Substance: DEXAMETHASONE
     Dosage: 3.25 MG, 1D
     Route: 048
     Dates: start: 20191108, end: 20191212
  32. DECADRON [Concomitant]
     Active Substance: DEXAMETHASONE
     Dosage: 3 MG, 1D
     Route: 048
     Dates: start: 20191213, end: 20200129
  33. DECADRON [Concomitant]
     Active Substance: DEXAMETHASONE
     Dosage: 2.5 MG
     Route: 048
     Dates: start: 20200130, end: 20200218
  34. DECADRON [Concomitant]
     Active Substance: DEXAMETHASONE
     Dosage: 2.25 MG
     Route: 048
     Dates: start: 20200219, end: 20200324
  35. DECADRON [Concomitant]
     Active Substance: DEXAMETHASONE
     Dosage: 2 MG
     Route: 048
     Dates: start: 20200325
  36. SOLU-MEDROL [Concomitant]
     Active Substance: METHYLPREDNISOLONE SODIUM SUCCINATE
     Indication: Eosinophilic granulomatosis with polyangiitis
     Dosage: 1 G, 1D
     Route: 042
     Dates: start: 20190827, end: 20190827
  37. SOLU-MEDROL [Concomitant]
     Active Substance: METHYLPREDNISOLONE SODIUM SUCCINATE
     Dosage: 1 G, 1D
     Route: 042
     Dates: start: 20191122, end: 20191124
  38. SOLU-CORTEF [Concomitant]
     Active Substance: HYDROCORTISONE SODIUM SUCCINATE
     Indication: Premedication
     Dosage: 100 MG, 1D
     Route: 042
     Dates: start: 20191125, end: 20191125
  39. SOLU-CORTEF [Concomitant]
     Active Substance: HYDROCORTISONE SODIUM SUCCINATE
     Dosage: 100 MG, 1D
     Route: 042
     Dates: start: 20191202, end: 20191202
  40. SOLU-CORTEF [Concomitant]
     Active Substance: HYDROCORTISONE SODIUM SUCCINATE
     Dosage: 100 MG, 1D
     Route: 042
     Dates: start: 20191209, end: 20191209
  41. SOLU-CORTEF [Concomitant]
     Active Substance: HYDROCORTISONE SODIUM SUCCINATE
     Dosage: 100 MG, 1D
     Route: 042
     Dates: start: 20191216, end: 20191216
  42. RITUXAN [Concomitant]
     Active Substance: RITUXIMAB
     Indication: Eosinophilic granulomatosis with polyangiitis
     Dosage: 620 MG, 1D
     Dates: start: 20191125, end: 20191125
  43. RITUXAN [Concomitant]
     Active Substance: RITUXIMAB
     Indication: Anti-neutrophil cytoplasmic antibody positive vasculitis
     Dosage: 620 MG, 1D
     Dates: start: 20191202, end: 20191202
  44. RITUXAN [Concomitant]
     Active Substance: RITUXIMAB
     Indication: Otitis media
     Dosage: 620 MG, 1D
     Dates: start: 20191209, end: 20191209
  45. RITUXAN [Concomitant]
     Active Substance: RITUXIMAB
     Dosage: 620 MG, 1D
     Dates: start: 20191216, end: 20191216
  46. METHYLCOBALAMIN [Concomitant]
     Active Substance: METHYLCOBALAMIN
     Indication: Eosinophilic granulomatosis with polyangiitis
     Dosage: UNK
  47. METHYLCOBALAMIN [Concomitant]
     Active Substance: METHYLCOBALAMIN
     Indication: Cranial nerve disorder
  48. LOXOPROFEN [Concomitant]
     Active Substance: LOXOPROFEN
     Indication: Eosinophilic granulomatosis with polyangiitis
     Dosage: UNK
  49. POLAPREZINC [Concomitant]
     Active Substance: POLAPREZINC
     Indication: Mineral supplementation
     Dosage: UNK
  50. POLAPREZINC [Concomitant]
     Active Substance: POLAPREZINC
     Indication: Prophylaxis
  51. BILASTINE [Concomitant]
     Active Substance: BILASTINE
     Indication: Premedication
     Dosage: UNK
  52. AMPHOTERICIN B [Concomitant]
     Active Substance: AMPHOTERICIN B
     Indication: Prophylaxis
     Dosage: UNK
  53. KENKETSU VENILON I [Concomitant]
     Indication: Eosinophilic granulomatosis with polyangiitis
     Dosage: 25 G, 1D
     Dates: start: 20190827, end: 20190831
  54. KENKETSU VENILON I [Concomitant]
     Dosage: 25 G, 1D
     Dates: start: 20191126, end: 20191130
  55. KENKETSU VENILON I [Concomitant]
     Dosage: 25 G, 1D
     Dates: start: 20200108, end: 20200112
  56. KENKETSU VENILON I [Concomitant]
     Dosage: 5 MG
     Dates: start: 20200325, end: 20200329

REACTIONS (7)
  - Cranial nerve disorder [Recovering/Resolving]
  - Anti-neutrophil cytoplasmic antibody positive vasculitis [Recovering/Resolving]
  - Otitis media [Recovering/Resolving]
  - Eosinophilic granulomatosis with polyangiitis [Recovering/Resolving]
  - Condition aggravated [Recovering/Resolving]
  - Inappropriate schedule of product administration [Unknown]
  - Off label use [Unknown]

NARRATIVE: CASE EVENT DATE: 20190509
